FAERS Safety Report 4604527-9 (Version None)
Quarter: 2005Q1

REPORT INFORMATION
  Report Type: 
  Country: None (occurrence: None)
  Receive Date: 20050310
  Receipt Date: 20010604
  Transmission Date: 20050727
  Serious: Yes (Other)
  Sender: FDA-Public Use
  Company Number: US-MERCK-01060285

PATIENT
  Age: 73 Year
  Sex: Female

DRUGS (5)
  1. VIOXX [Suspect]
     Indication: BACK DISORDER
     Route: 048
     Dates: start: 20010301, end: 20020501
  2. VIOXX [Suspect]
     Route: 048
     Dates: start: 20000101
  3. TYLENOL (CAPLET) [Concomitant]
     Route: 065
  4. PERCOCET [Concomitant]
     Route: 065
  5. [THERAPY UNSPECIFIED] [Concomitant]
     Route: 065

REACTIONS (2)
  - AORTIC VALVE DISEASE [None]
  - DRUG INEFFECTIVE [None]
